FAERS Safety Report 15066715 (Version 8)
Quarter: 2018Q3

REPORT INFORMATION
  Report Type: Report from Study
  Country: US (occurrence: US)
  Receive Date: 20180626
  Receipt Date: 20180911
  Transmission Date: 20181010
  Serious: Yes (Hospitalization, Other)
  Sender: FDA-Public Use
  Company Number: US-GILEAD-2018-0346663

PATIENT
  Age: 37 Year
  Sex: Female

DRUGS (5)
  1. UPTRAVI [Concomitant]
     Active Substance: SELEXIPAG
  2. ADCIRCA [Concomitant]
     Active Substance: TADALAFIL
  3. REMODULIN [Concomitant]
     Active Substance: TREPROSTINIL
  4. ELIQUIS [Concomitant]
     Active Substance: APIXABAN
  5. AMBRISENTAN [Suspect]
     Active Substance: AMBRISENTAN
     Indication: PRODUCT USED FOR UNKNOWN INDICATION
     Dosage: 10 MG, QD
     Route: 065
     Dates: start: 20180221

REACTIONS (21)
  - Lip injury [Unknown]
  - Swelling [Not Recovered/Not Resolved]
  - Haemorrhage [Recovered/Resolved]
  - Loss of consciousness [Recovered/Resolved]
  - Injection site erythema [Not Recovered/Not Resolved]
  - Syncope [Unknown]
  - Infusion site pain [Not Recovered/Not Resolved]
  - Injection site swelling [Not Recovered/Not Resolved]
  - Headache [Not Recovered/Not Resolved]
  - Oligomenorrhoea [Recovered/Resolved]
  - Flushing [Not Recovered/Not Resolved]
  - Syncope [Recovered/Resolved]
  - Haemoglobin decreased [Recovered/Resolved]
  - Dyspnoea [Not Recovered/Not Resolved]
  - Intra-uterine contraceptive device insertion [Recovered/Resolved]
  - Pain [Not Recovered/Not Resolved]
  - Fatigue [Not Recovered/Not Resolved]
  - Palpitations [Not Recovered/Not Resolved]
  - Diarrhoea [Not Recovered/Not Resolved]
  - Nausea [Not Recovered/Not Resolved]
  - Abdominal discomfort [Not Recovered/Not Resolved]

NARRATIVE: CASE EVENT DATE: 201805
